FAERS Safety Report 6025232-0 (Version None)
Quarter: 2008Q4

REPORT INFORMATION
  Report Type: 
  Country: None (occurrence: None)
  Receive Date: 20081229
  Receipt Date: 20081229
  Transmission Date: 20090506
  Serious: Yes (Other)
  Sender: FDA-Public Use
  Company Number: None

PATIENT
  Age: 34 Year
  Sex: Female
  Weight: 63.05 kg

DRUGS (2)
  1. KENALOG [Suspect]
  2. LYRICA [Suspect]

REACTIONS (1)
  - WEIGHT INCREASED [None]
